APPROVED DRUG PRODUCT: DIVALPROEX SODIUM
Active Ingredient: DIVALPROEX SODIUM
Strength: EQ 125MG VALPROIC ACID
Dosage Form/Route: TABLET, DELAYED RELEASE;ORAL
Application: A090210 | Product #001 | TE Code: AB
Applicant: PRINSTON PHARMACEUTICAL INC
Approved: Nov 30, 2009 | RLD: No | RS: No | Type: RX